FAERS Safety Report 19837043 (Version 1)
Quarter: 2021Q3

REPORT INFORMATION
  Report Type: Spontaneous
  Country: US (occurrence: US)
  Receive Date: 20210914
  Receipt Date: 20210914
  Transmission Date: 20211014
  Serious: Yes (Hospitalization, Other)
  Sender: FDA-Public Use
  Company Number: US-UCBSA-2021021296

PATIENT
  Age: 57 Year
  Sex: Female
  Weight: 65.7 kg

DRUGS (3)
  1. PREDNISONE. [Concomitant]
     Active Substance: PREDNISONE
     Indication: PRODUCT USED FOR UNKNOWN INDICATION
     Route: 058
  2. METHOTREXATE. [Concomitant]
     Active Substance: METHOTREXATE
     Indication: PRODUCT USED FOR UNKNOWN INDICATION
     Route: 048
  3. CIMZIA [Suspect]
     Active Substance: CERTOLIZUMAB PEGOL
     Indication: RHEUMATOID ARTHRITIS
     Dosage: 400 MILLIGRAM, EV 4 WEEKS
     Route: 058
     Dates: start: 20200416

REACTIONS (8)
  - Mediastinal disorder [Unknown]
  - Lymphadenopathy [Unknown]
  - Rheumatoid arthritis [Unknown]
  - COVID-19 immunisation [Unknown]
  - Fatigue [Unknown]
  - Adverse event [Unknown]
  - Neck pain [Unknown]
  - Muscle strain [Unknown]

NARRATIVE: CASE EVENT DATE: 202103
